FAERS Safety Report 20668206 (Version 8)
Quarter: 2022Q4

REPORT INFORMATION
  Report Type: Spontaneous
  Country: US (occurrence: US)
  Receive Date: 20220404
  Receipt Date: 20221003
  Transmission Date: 20230113
  Serious: Yes (Other)
  Sender: FDA-Public Use
  Company Number: US-BAYER-2022A043710

PATIENT
  Sex: Male

DRUGS (14)
  1. KOVALTRY [Suspect]
     Active Substance: ANTIHEMOPHILIC FACTOR, HUMAN RECOMBINANT
     Indication: Factor VIII deficiency
     Dosage: 4000 IU, EVERY OTHER DAY AND AS NEEDED
     Route: 042
  2. KOVALTRY [Suspect]
     Active Substance: ANTIHEMOPHILIC FACTOR, HUMAN RECOMBINANT
     Indication: Factor VIII deficiency
     Dosage: 2 DF, FOR THE LEFT KNEE BLEED TREATMENT
     Route: 042
  3. KOVALTRY [Suspect]
     Active Substance: ANTIHEMOPHILIC FACTOR, HUMAN RECOMBINANT
     Indication: Factor VIII deficiency
     Dosage: 1 DF, FOR THE LEFT KNEE BLEED TREATMENT
     Route: 042
  4. KOVALTRY [Suspect]
     Active Substance: ANTIHEMOPHILIC FACTOR, HUMAN RECOMBINANT
     Indication: Factor VIII deficiency
     Dosage: 1 DF, FOR THE LEFT ELBOWBLEED TREATMENT
     Route: 042
  5. KOVALTRY [Suspect]
     Active Substance: ANTIHEMOPHILIC FACTOR, HUMAN RECOMBINANT
     Indication: Factor VIII deficiency
     Dosage: 1 DF, FOR THE LEFT ELBOWBLEED TREATMENT
     Route: 042
  6. KOVALTRY [Suspect]
     Active Substance: ANTIHEMOPHILIC FACTOR, HUMAN RECOMBINANT
     Indication: Factor VIII deficiency
     Dosage: 2 DF,FOR THE LEFY KNEE AND RIGHT ELBOW BLEED TREATMENT
  7. KOVALTRY [Suspect]
     Active Substance: ANTIHEMOPHILIC FACTOR, HUMAN RECOMBINANT
     Indication: Factor VIII deficiency
     Dosage: 300 UNITS/500 UNITS INFUSE ~ 4000 UNITS (+/-10%) , QOD
     Route: 042
  8. KOVALTRY [Suspect]
     Active Substance: ANTIHEMOPHILIC FACTOR, HUMAN RECOMBINANT
     Indication: Factor VIII deficiency
     Dosage: 1 DF, FOR THE LEFT ELBOW, HAND, KNEE AND LEG BLEED TREATMENT
  9. KOVALTRY [Suspect]
     Active Substance: ANTIHEMOPHILIC FACTOR, HUMAN RECOMBINANT
     Indication: Factor VIII deficiency
     Dosage: 2 DF, FOR THE LEFT ELBOW, RIGTH ARM AND LEFT KNEE BLEEDS TREATMENT
  10. BUSPAR [Concomitant]
     Active Substance: BUSPIRONE HYDROCHLORIDE
  11. ACETAMINOPHEN [Concomitant]
     Active Substance: ACETAMINOPHEN
  12. HYDROCODONE [Concomitant]
     Active Substance: HYDROCODONE
  13. LIDO [Concomitant]
  14. PRILOCAINE [Concomitant]
     Active Substance: PRILOCAINE
     Dosage: UNK DF

REACTIONS (16)
  - Haemarthrosis [Recovering/Resolving]
  - Haemarthrosis [Recovering/Resolving]
  - Haemarthrosis [Not Recovered/Not Resolved]
  - Headache [None]
  - Chest discomfort [None]
  - Feeling of body temperature change [None]
  - Haemarthrosis [None]
  - Haemarthrosis [None]
  - Haemarthrosis [None]
  - Haemorrhage [None]
  - Haemorrhage [Not Recovered/Not Resolved]
  - Haemarthrosis [Not Recovered/Not Resolved]
  - Haemarthrosis [Not Recovered/Not Resolved]
  - Contusion [None]
  - Haemorrhage [None]
  - Contusion [Not Recovered/Not Resolved]
